FAERS Safety Report 21437049 (Version 1)
Quarter: 2022Q4

REPORT INFORMATION
  Report Type: Spontaneous
  Country: US (occurrence: US)
  Receive Date: 20221010
  Receipt Date: 20221010
  Transmission Date: 20230113
  Serious: Yes (Other)
  Sender: FDA-Public Use
  Company Number: US-BRISTOL-MYERS SQUIBB COMPANY-2022-116372

PATIENT
  Age: 57 Year
  Sex: Female

DRUGS (1)
  1. REVLIMID [Suspect]
     Active Substance: LENALIDOMIDE
     Indication: Essential thrombocythaemia
     Dosage: 1 TIME DAILY ON DAYS 1-21 OF 28 DAY CYCLE.
     Route: 048
     Dates: start: 202209

REACTIONS (2)
  - Drug ineffective [Unknown]
  - Off label use [Unknown]
